FAERS Safety Report 20953806 (Version 1)
Quarter: 2022Q2

REPORT INFORMATION
  Report Type: Spontaneous
  Country: IT (occurrence: IT)
  Receive Date: 20220614
  Receipt Date: 20220614
  Transmission Date: 20220721
  Serious: Yes (Death, Other)
  Sender: FDA-Public Use
  Company Number: IT-MINISAL02-871430

PATIENT
  Age: 54 Year
  Sex: Male
  Weight: 65 kg

DRUGS (7)
  1. OXALIPLATIN [Suspect]
     Active Substance: OXALIPLATIN
     Indication: Colon cancer stage III
     Dosage: 200 MILLIGRAM, TOTAL
     Route: 042
     Dates: start: 20220304, end: 20220304
  2. CAPECITABINE [Suspect]
     Active Substance: CAPECITABINE
     Indication: Colon cancer stage III
     Dosage: 3500 MILLIGRAM, ONCE A DAY
     Route: 048
     Dates: start: 20220305, end: 20220315
  3. PREDNISONE [Concomitant]
     Active Substance: PREDNISONE
     Indication: Product used for unknown indication
     Dosage: UNK
     Route: 065
  4. Folina [Concomitant]
     Indication: Product used for unknown indication
     Dosage: UNK
     Route: 065
  5. PANTOPRAZOLE [Concomitant]
     Active Substance: PANTOPRAZOLE
     Indication: Product used for unknown indication
     Dosage: UNK
     Route: 065
  6. FERRO GRAD C [Concomitant]
     Indication: Product used for unknown indication
     Dosage: UNK
     Route: 065
  7. Levopraid [Concomitant]
     Indication: Product used for unknown indication
     Dosage: UNK
     Route: 065

REACTIONS (8)
  - Gastrointestinal mucosal necrosis [Fatal]
  - Anaemia [Fatal]
  - Diarrhoea [Fatal]
  - Gastrointestinal toxicity [Fatal]
  - White blood cell count decreased [Fatal]
  - Mucosal inflammation [Fatal]
  - Haematotoxicity [Fatal]
  - Thrombocytopenia [Fatal]

NARRATIVE: CASE EVENT DATE: 20220316
